FAERS Safety Report 12072707 (Version 1)
Quarter: 2016Q1

REPORT INFORMATION
  Report Type: Spontaneous
  Country: US (occurrence: None)
  Receive Date: 20160211
  Receipt Date: 20160211
  Transmission Date: 20160526
  Serious: Yes (Other)
  Sender: FDA-Public Use
  Company Number: None

PATIENT
  Age: 47 Year
  Sex: Female

DRUGS (1)
  1. B UPROPION 75 MG GENERIC [Suspect]
     Active Substance: BUPROPION
     Indication: PERSISTENT DEPRESSIVE DISORDER
     Route: 048
     Dates: start: 2006

REACTIONS (8)
  - Peripheral swelling [None]
  - Joint swelling [None]
  - Menstruation irregular [None]
  - Depression [None]
  - Headache [None]
  - Activities of daily living impaired [None]
  - Product substitution issue [None]
  - Rash [None]

NARRATIVE: CASE EVENT DATE: 2006
